FAERS Safety Report 10568246 (Version 1)
Quarter: 2014Q4

REPORT INFORMATION
  Report Type: Spontaneous
  Country: US (occurrence: None)
  Receive Date: 20141105
  Receipt Date: 20141105
  Transmission Date: 20150529
  Serious: No
  Sender: FDA-Public Use
  Company Number: None

PATIENT
  Age: 10 Year
  Sex: Female

DRUGS (2)
  1. LUPRON DEPOT-PED [Suspect]
     Active Substance: LEUPROLIDE ACETATE
     Indication: PRECOCIOUS PUBERTY
     Dosage: INJECT 15MG EVERY 28 DAYS I.M.
     Route: 030
  2. LUPRON DEPOT-PED [Suspect]
     Active Substance: LEUPROLIDE ACETATE
     Indication: DWARFISM
     Dosage: INJECT 15MG EVERY 28 DAYS I.M.
     Route: 030

REACTIONS (2)
  - Pain in extremity [None]
  - Crying [None]

NARRATIVE: CASE EVENT DATE: 20141103
